FAERS Safety Report 7842966-3 (Version None)
Quarter: 2011Q4

REPORT INFORMATION
  Report Type: 
  Country: None (occurrence: None)
  Receive Date: 20111025
  Receipt Date: 20111012
  Transmission Date: 20120403
  Serious: Yes (Life-Threatening, Hospitalization)
  Sender: FDA-Public Use
  Company Number: JP-ELI_LILLY_AND_COMPANY-JP201109001554

PATIENT
  Age: 25 Year
  Sex: Male

DRUGS (5)
  1. AKINETON [Concomitant]
     Dosage: 2 MG, UNK
     Route: 048
  2. TAMSULOSIN HCL [Concomitant]
     Dosage: 0.2 MG, UNK
     Route: 048
  3. RISPERIDONE [Concomitant]
     Indication: SCHIZOPHRENIA
     Dosage: 8 MG, UNK
     Route: 048
  4. ZYPREXA [Suspect]
     Indication: SCHIZOPHRENIA
     Dosage: UNK
     Route: 065
  5. DEPAKENE [Concomitant]
     Dosage: 600 MG, UNK
     Route: 048

REACTIONS (5)
  - RHABDOMYOLYSIS [None]
  - SCHIZOPHRENIA [None]
  - RESTLESSNESS [None]
  - WATER INTOXICATION [None]
  - LACK OF SPONTANEOUS SPEECH [None]
